FAERS Safety Report 4579040-8 (Version None)
Quarter: 2005Q1

REPORT INFORMATION
  Report Type: 
  Country: None (occurrence: None)
  Receive Date: 20050119
  Receipt Date: 20041028
  Transmission Date: 20050727
  Serious: Yes (Other)
  Sender: FDA-Public Use
  Company Number: US-JNJFOC-20041100701

PATIENT
  Age: 43 Year
  Sex: Female

DRUGS (11)
  1. DOXIL [Suspect]
     Indication: BREAST CANCER
     Dosage: 101 MG, INTRAVENOUS
     Route: 042
     Dates: start: 20040827, end: 20041008
  2. NEURONTIN [Concomitant]
  3. MULTIVITAMIN (MULTIVITAMINS) [Concomitant]
  4. CALTRATE (CALCIUM CARBONATE) [Concomitant]
  5. OXYCONTIN [Concomitant]
  6. VITAMIN B6 [Concomitant]
  7. VITAMIN B12 [Concomitant]
  8. VITAMIN E [Concomitant]
  9. FOSAMAX [Concomitant]
  10. PHENERGAN [Concomitant]
  11. HYDROCODONE BITARTRATE [Concomitant]

REACTIONS (3)
  - DERMATITIS EXFOLIATIVE [None]
  - ERYTHEMA [None]
  - PRURITUS [None]
